FAERS Safety Report 21577371 (Version 2)
Quarter: 2022Q4

REPORT INFORMATION
  Report Type: Spontaneous
  Country: JP (occurrence: JP)
  Receive Date: 20221110
  Receipt Date: 20221206
  Transmission Date: 20230112
  Serious: Yes (Hospitalization)
  Sender: FDA-Public Use
  Company Number: JP-GLAXOSMITHKLINE-JP2022JPN162482

PATIENT

DRUGS (2)
  1. VALTREX [Suspect]
     Active Substance: VALACYCLOVIR HYDROCHLORIDE
     Indication: Genital herpes
     Dosage: 1000 MG/DAY
     Route: 048
     Dates: start: 20221101, end: 20221105
  2. VIDARABINE [Concomitant]
     Active Substance: VIDARABINE
     Indication: Genital herpes
     Dosage: UNK, QID
     Dates: start: 20221104

REACTIONS (2)
  - Genital herpes [Recovered/Resolved with Sequelae]
  - Therapeutic product effect incomplete [Unknown]

NARRATIVE: CASE EVENT DATE: 20221105
